FAERS Safety Report 22079904 (Version 2)
Quarter: 2025Q1

REPORT INFORMATION
  Report Type: Report from Study
  Country: CA (occurrence: CA)
  Receive Date: 20230309
  Receipt Date: 20250113
  Transmission Date: 20250408
  Serious: Yes (Hospitalization, Other)
  Sender: TAKEDA
  Company Number: CA-TAKEDA-2023TUS023767

PATIENT
  Age: 62 Year
  Sex: Female

DRUGS (4)
  1. VEDOLIZUMAB [Suspect]
     Active Substance: VEDOLIZUMAB
     Indication: Colitis ulcerative
  2. VEDOLIZUMAB [Suspect]
     Active Substance: VEDOLIZUMAB
  3. MESALAMINE [Concomitant]
     Active Substance: MESALAMINE
  4. HYDROMORPHONE [Concomitant]
     Active Substance: HYDROMORPHONE

REACTIONS (2)
  - Fall [Recovering/Resolving]
  - Humerus fracture [Recovering/Resolving]

NARRATIVE: CASE EVENT DATE: 20230115
